FAERS Safety Report 24589532 (Version 1)
Quarter: 2024Q4

REPORT INFORMATION
  Report Type: Spontaneous
  Country: ES (occurrence: ES)
  Receive Date: 20241107
  Receipt Date: 20241107
  Transmission Date: 20250114
  Serious: Yes (Other)
  Sender: JOHNSON AND JOHNSON
  Company Number: ES-JNJFOC-20241103295

PATIENT
  Age: 43 Year
  Sex: Female

DRUGS (1)
  1. DARZALEX [Suspect]
     Active Substance: DARATUMUMAB
     Indication: Aplasia pure red cell
     Route: 065
     Dates: start: 2022

REACTIONS (6)
  - Renal failure [Recovering/Resolving]
  - Polyomavirus-associated nephropathy [Recovering/Resolving]
  - Hypogammaglobulinaemia [Unknown]
  - Lymphopenia [Unknown]
  - Viraemia [Recovering/Resolving]
  - Off label use [Unknown]

NARRATIVE: CASE EVENT DATE: 20220801
